FAERS Safety Report 18704082 (Version 11)
Quarter: 2021Q4

REPORT INFORMATION
  Report Type: Spontaneous
  Country: US (occurrence: US)
  Receive Date: 20210106
  Receipt Date: 20211214
  Transmission Date: 20220303
  Serious: Yes (Hospitalization, Other)
  Sender: FDA-Public Use
  Company Number: US-SA-2020SA025098

PATIENT
  Age: 17 Year
  Sex: Female

DRUGS (4)
  1. LUMIZYME [Suspect]
     Active Substance: ALGLUCOSIDASE ALFA
     Indication: Glycogen storage disease type II
     Dosage: 200 MG, QW
     Route: 042
     Dates: start: 20191028, end: 201910
  2. LUMIZYME [Suspect]
     Active Substance: ALGLUCOSIDASE ALFA
     Dosage: 2150 MG, QOW
     Route: 042
     Dates: start: 20191029
  3. LUMIZYME [Suspect]
     Active Substance: ALGLUCOSIDASE ALFA
     Dosage: 200 MG, QOW
     Route: 042
     Dates: start: 20201029
  4. OXACILLIN [Concomitant]
     Active Substance: OXACILLIN SODIUM
     Dosage: UNK
     Route: 065

REACTIONS (8)
  - Arthritis bacterial [Unknown]
  - Medical device site infection [Unknown]
  - Arthralgia [Unknown]
  - Hospitalisation [Unknown]
  - Cardiac operation [Unknown]
  - Cough [Unknown]
  - Body temperature increased [Unknown]
  - Product dose omission issue [Unknown]

NARRATIVE: CASE EVENT DATE: 20201229
